FAERS Safety Report 10187795 (Version 1)
Quarter: 2014Q2

REPORT INFORMATION
  Report Type: Spontaneous
  Country: US (occurrence: US)
  Receive Date: 20140522
  Receipt Date: 20140522
  Transmission Date: 20141212
  Serious: No
  Sender: FDA-Public Use
  Company Number: US-SA-2013SA102449

PATIENT
  Age: 57 Year
  Sex: Male
  Weight: 86 kg

DRUGS (19)
  1. LANTUS SOLOSTAR [Suspect]
     Indication: TYPE 2 DIABETES MELLITUS
     Dosage: DOSE- 28 UNITS IN AM AND 22 UNITS PM
     Route: 051
     Dates: start: 2004
  2. LANTUS SOLOSTAR [Suspect]
     Indication: TYPE 2 DIABETES MELLITUS
     Dosage: DOSE- 28 UNITS IN AM AND 22 UNITS PM
     Route: 051
     Dates: start: 2004
  3. LANTUS SOLOSTAR [Suspect]
     Indication: TYPE 2 DIABETES MELLITUS
     Dosage: DOSE- 28 UNITS IN AM AND 22 UNITS PM
     Route: 051
     Dates: start: 2004
  4. NOVOLOG [Suspect]
     Dosage: FREQUENCY- BEFORE LUNCH, DINNER AND LATE NIGHT DOSE:16 UNIT(S)
     Route: 065
  5. VICTOZA [Suspect]
     Dosage: FREQUENCY- IN MORNING
     Route: 065
  6. METFORMIN [Suspect]
     Route: 065
  7. SOLOSTAR [Concomitant]
     Dosage: TAKEN FROM: AT LEAST FROM 5 YEARS
     Dates: start: 2004
  8. SOLOSTAR [Concomitant]
     Dosage: TAKEN FROM: AT LEAST FROM 5 YEARS
     Dates: start: 2004
  9. SOLOSTAR [Concomitant]
     Dosage: TAKEN FROM: AT LEAST FROM 5 YEARS
     Dates: start: 2004
  10. ASPIRIN [Concomitant]
     Route: 065
  11. SYNTHROID [Concomitant]
     Dosage: FREQUENCY- IN MORNING
     Route: 065
  12. VITAMIN D3 [Concomitant]
     Dosage: FREQUENCY-IN MORNING
     Route: 065
  13. LOVAZA [Concomitant]
     Route: 065
  14. LIPITOR [Concomitant]
     Route: 065
  15. KEPPRA [Concomitant]
     Route: 065
  16. VIMPAT [Concomitant]
     Dosage: DOSE-1.50 TABLET
     Route: 065
  17. COZAAR [Concomitant]
     Route: 065
  18. TAMSULOSIN [Concomitant]
     Route: 065
  19. AVODART [Concomitant]
     Route: 065

REACTIONS (3)
  - Weight decreased [Unknown]
  - Injection site bruising [Unknown]
  - Injection site haemorrhage [Unknown]
